FAERS Safety Report 9664094 (Version 1)
Quarter: 2013Q4

REPORT INFORMATION
  Report Type: Spontaneous
  Country: AT (occurrence: AT)
  Receive Date: 20131101
  Receipt Date: 20131101
  Transmission Date: 20140711
  Serious: Yes (Disabling)
  Sender: FDA-Public Use
  Company Number: AT-MERCK-1310AUT013106

PATIENT
  Age: 71 Year
  Sex: Male
  Weight: 105 kg

DRUGS (5)
  1. EZETROL [Suspect]
     Indication: HYPERCHOLESTEROLAEMIA
     Dosage: 10 MG, QD
     Route: 048
     Dates: start: 201305
  2. AMLODIPINE [Concomitant]
     Dosage: 5 MG, QD
     Route: 048
  3. EBRANTIL [Concomitant]
     Dosage: 30 MG, QD
     Route: 048
  4. BLOPRESS [Concomitant]
     Dosage: 8 MG, QD
     Route: 048
  5. SEROXAT [Concomitant]
     Dosage: 20 MG, QD
     Route: 048

REACTIONS (3)
  - Tremor [Unknown]
  - Parkinsonian gait [Unknown]
  - Amimia [Unknown]
